FAERS Safety Report 8805694 (Version 1)
Quarter: 2012Q4

REPORT INFORMATION
  Report Type: 
  Country: US (occurrence: US)
  Receive Date: 20120924
  Receipt Date: 20120924
  Transmission Date: 20130627
  Serious: Yes (Other)
  Sender: FDA-Public Use
  Company Number: US-009507513-1209USA009134

PATIENT

DRUGS (2)
  1. PROSCAR [Suspect]
     Indication: PROSTATE CANCER
     Dosage: 5 mg, qd
     Route: 048
  2. FLUTAMIDE [Suspect]
     Indication: PROSTATE CANCER
     Dosage: 250 mg, tid

REACTIONS (1)
  - Platelet disorder [Unknown]
